FAERS Safety Report 7428890-9 (Version None)
Quarter: 2011Q2

REPORT INFORMATION
  Report Type: 
  Country: None (occurrence: None)
  Receive Date: 20110415
  Receipt Date: 20110415
  Transmission Date: 20111010
  Serious: Yes (Other)
  Sender: FDA-Public Use
  Company Number: None

PATIENT
  Age: 45 Year
  Sex: Female
  Weight: 70.3075 kg

DRUGS (1)
  1. NUCYNTA [Suspect]
     Indication: NEURALGIA
     Dosage: 1 TABLET EVERY 6 HOURS FOR PO
     Route: 048
     Dates: start: 20110407, end: 20110413

REACTIONS (3)
  - VISUAL ACUITY REDUCED [None]
  - HEADACHE [None]
  - FEELING ABNORMAL [None]
